FAERS Safety Report 21548244 (Version 1)
Quarter: 2022Q4

REPORT INFORMATION
  Report Type: Spontaneous
  Country: US (occurrence: None)
  Receive Date: 20221102
  Receipt Date: 20221102
  Transmission Date: 20230113
  Serious: No
  Sender: FDA-Public Use
  Company Number: None

PATIENT
  Age: 61 Year
  Sex: Female
  Weight: 58.97 kg

DRUGS (2)
  1. SIMPONI [Suspect]
     Active Substance: GOLIMUMAB
     Indication: Polyarthritis
     Dosage: INJECT 50MG  SUBCUTANEOUSLY  ONCE  A MONTHAS DIRECTED
     Route: 058
     Dates: start: 202205
  2. SIMPONI [Suspect]
     Active Substance: GOLIMUMAB
     Indication: Rheumatoid arthritis

REACTIONS (3)
  - Therapy interrupted [None]
  - Fungal infection [None]
  - Oropharyngeal pain [None]
